FAERS Safety Report 6710109-5 (Version None)
Quarter: 2010Q2

REPORT INFORMATION
  Report Type: 
  Country: None (occurrence: None)
  Receive Date: 20100504
  Receipt Date: 20100421
  Transmission Date: 20101027
  Serious: Yes (Other)
  Sender: FDA-Public Use
  Company Number: ES-JNJFOC-20100304667

PATIENT
  Age: 40 Year
  Sex: Female
  Weight: 90 kg

DRUGS (3)
  1. REMICADE [Suspect]
     Indication: PSORIASIS
     Route: 042
  2. REMICADE [Suspect]
     Dosage: DOSE ALSO REPORTED AS 500 MG.
     Route: 042
  3. REMICADE [Suspect]
     Dosage: CYCLE 5
     Route: 042

REACTIONS (4)
  - FISTULA [None]
  - OVARIAN CYST [None]
  - SEROMA [None]
  - STAPHYLOCOCCAL INFECTION [None]
